FAERS Safety Report 12691800 (Version 1)
Quarter: 2016Q3

REPORT INFORMATION
  Report Type: Spontaneous
  Country: US (occurrence: US)
  Receive Date: 20160826
  Receipt Date: 20160826
  Transmission Date: 20161109
  Serious: No
  Sender: FDA-Public Use
  Company Number: US-PRINSTON PHARMACEUTICAL INC.-2015PRN00107

PATIENT
  Sex: Male
  Weight: 81.63 kg

DRUGS (2)
  1. UNSPECIFIED DRUG (^PURPLE PILL^) [Suspect]
     Active Substance: UNSPECIFIED INGREDIENT
  2. LISINOPRIL. [Suspect]
     Active Substance: LISINOPRIL
     Indication: HYPERTENSION
     Dosage: 10 MG, 1X/DAY
     Route: 048
     Dates: start: 2008

REACTIONS (2)
  - Hyperphagia [Recovered/Resolved]
  - Abdominal discomfort [Recovered/Resolved]
